FAERS Safety Report 8572555-7 (Version None)
Quarter: 2012Q3

REPORT INFORMATION
  Report Type: 
  Country: None (occurrence: None)
  Receive Date: 20120806
  Receipt Date: 20120728
  Transmission Date: 20120928
  Serious: Yes (Hospitalization)
  Sender: FDA-Public Use
  Company Number: US-VERTEX PHARMACEUTICALS INC.-AE-2012-009213

PATIENT
  Sex: Male
  Weight: 68.554 kg

DRUGS (4)
  1. INCIVEK [Suspect]
     Indication: HEPATITIS C
     Route: 048
     Dates: start: 20120611
  2. RIBAVIRIN [Concomitant]
     Indication: HEPATITIS C
     Route: 048
     Dates: start: 20120611, end: 20120725
  3. RIBAVIRIN [Concomitant]
     Route: 048
     Dates: start: 20120728
  4. PEGASYS [Concomitant]
     Indication: HEPATITIS C
     Route: 058
     Dates: start: 20120611

REACTIONS (10)
  - PAROSMIA [None]
  - PANCYTOPENIA [None]
  - INFLUENZA LIKE ILLNESS [None]
  - DYSGEUSIA [None]
  - COUGH [None]
  - RASH [None]
  - FATIGUE [None]
  - DISTURBANCE IN ATTENTION [None]
  - ASTHENIA [None]
  - NAUSEA [None]
